FAERS Safety Report 23326618 (Version 1)
Quarter: 2023Q4

REPORT INFORMATION
  Report Type: Spontaneous
  Country: US (occurrence: None)
  Receive Date: 20231220
  Receipt Date: 20231220
  Transmission Date: 20240110
  Serious: No
  Sender: FDA-Public Use
  Company Number: None

PATIENT
  Sex: 0

DRUGS (1)
  1. DYSPORT [Suspect]
     Active Substance: ABOBOTULINUMTOXINA
     Dates: start: 20231004

REACTIONS (5)
  - Restlessness [None]
  - Insomnia [None]
  - Asthenia [None]
  - Malaise [None]
  - Fear [None]

NARRATIVE: CASE EVENT DATE: 20231004
